FAERS Safety Report 9436746 (Version 1)
Quarter: 2013Q3

REPORT INFORMATION
  Report Type: Spontaneous
  Country: FR (occurrence: FR)
  Receive Date: 20130802
  Receipt Date: 20130802
  Transmission Date: 20140515
  Serious: Yes (Hospitalization)
  Sender: FDA-Public Use
  Company Number: FR-JNJFOC-20130715761

PATIENT
  Age: 58 Year
  Sex: Male

DRUGS (2)
  1. REMICADE [Suspect]
     Indication: PRODUCT USED FOR UNKNOWN INDICATION
     Dosage: 4TH INFUSION
     Route: 042
     Dates: start: 20130522
  2. REMICADE [Suspect]
     Indication: PRODUCT USED FOR UNKNOWN INDICATION
     Route: 042

REACTIONS (7)
  - Tremor [Unknown]
  - Headache [Unknown]
  - Respiratory disorder [Recovered/Resolved]
  - Chills [Recovered/Resolved]
  - Hypertension [Recovered/Resolved]
  - Infusion related reaction [Unknown]
  - Paraesthesia [Unknown]
